FAERS Safety Report 15341091 (Version 1)
Quarter: 2018Q3

REPORT INFORMATION
  Report Type: Spontaneous
  Country: US (occurrence: US)
  Receive Date: 20180831
  Receipt Date: 20180831
  Transmission Date: 20181010
  Serious: No
  Sender: FDA-Public Use
  Company Number: US-PFIZER INC-2018346471

PATIENT
  Age: 61 Year
  Sex: Female

DRUGS (1)
  1. DILANTIN [Suspect]
     Active Substance: PHENYTOIN
     Dosage: UNK

REACTIONS (4)
  - Accidental exposure to product [Unknown]
  - Exposure via skin contact [Unknown]
  - Wound [Unknown]
  - Thermal burn [Unknown]
